FAERS Safety Report 20328365 (Version 2)
Quarter: 2022Q1

REPORT INFORMATION
  Report Type: Spontaneous
  Country: None (occurrence: US)
  Receive Date: 20220112
  Receipt Date: 20220119
  Transmission Date: 20220423
  Serious: No
  Sender: FDA-Public Use
  Company Number: US-B.Braun Medical Inc.-2123859

PATIENT
  Age: 51 Year
  Sex: Male

DRUGS (8)
  1. STERILE WATER [Suspect]
     Active Substance: WATER
  2. MAGNESIUM [Concomitant]
     Active Substance: MAGNESIUM
     Route: 042
     Dates: start: 20211202
  3. POTASSIUM [Suspect]
     Active Substance: POTASSIUM
     Route: 042
     Dates: start: 20211202
  4. CALCIUM [Concomitant]
     Active Substance: CALCIUM
     Route: 042
     Dates: start: 20211202
  5. VITAMIN C [Concomitant]
     Active Substance: ASCORBIC ACID
     Route: 042
     Dates: start: 20211202
  6. ZINC [Concomitant]
     Active Substance: ZINC
     Route: 042
     Dates: start: 20211202
  7. FOLIC ACID [Concomitant]
     Active Substance: FOLIC ACID
     Route: 042
     Dates: start: 20211202
  8. VITAMIN B COMPLEX [Concomitant]
     Active Substance: CYANOCOBALAMIN\DEXPANTHENOL\NIACINAMIDE\PYRIDOXINE HYDROCHLORIDE\RIBOFLAVIN 5^-PHOSPHATE SODIUM\THIA
     Route: 042
     Dates: start: 20211202

REACTIONS (3)
  - Tremor [Recovered/Resolved]
  - Fatigue [Recovered/Resolved]
  - Pyrexia [Recovered/Resolved]
